FAERS Safety Report 4679951-9 (Version None)
Quarter: 2005Q2

REPORT INFORMATION
  Report Type: 
  Country: None (occurrence: None)
  Receive Date: 20050531
  Receipt Date: 20050520
  Transmission Date: 20051028
  Serious: Yes (Life-Threatening, Hospitalization)
  Sender: FDA-Public Use
  Company Number: B0382443A

PATIENT
  Age: 11 Year
  Sex: Male
  Weight: 47.8998 kg

DRUGS (3)
  1. LAMICTAL [Suspect]
     Indication: EPILEPSY
     Dosage: 25 MG / TWICE PER DAY / ORAL
     Route: 048
     Dates: start: 20050128, end: 20050228
  2. OXCARBAZEPINE [Concomitant]
  3. PERAZINE DIMALONATE [Concomitant]

REACTIONS (3)
  - CONJUNCTIVITIS [None]
  - STEVENS-JOHNSON SYNDROME [None]
  - TOXIC EPIDERMAL NECROLYSIS [None]
